FAERS Safety Report 8983340 (Version 2)
Quarter: 2012Q4

REPORT INFORMATION
  Report Type: 
  Country: BE (occurrence: BE)
  Receive Date: 20121224
  Receipt Date: 20121228
  Transmission Date: 20130627
  Serious: Yes (Other)
  Sender: FDA-Public Use
  Company Number: BE-JNJFOC-20121210030

PATIENT
  Age: 85 None
  Sex: Male

DRUGS (7)
  1. XARELTO [Suspect]
     Indication: CEREBROVASCULAR ACCIDENT PROPHYLAXIS
     Route: 048
     Dates: start: 20120522, end: 20121017
  2. XARELTO [Suspect]
     Indication: ATRIAL FIBRILLATION
     Route: 048
     Dates: start: 20120522, end: 20121017
  3. EMCORETIC [Concomitant]
     Indication: PRODUCT USED FOR UNKNOWN INDICATION
     Route: 065
  4. BEFACT [Concomitant]
     Route: 065
  5. XYZALL [Concomitant]
     Route: 065
  6. LASIX [Concomitant]
     Route: 065
  7. TAMBOCOR [Concomitant]
     Route: 065

REACTIONS (3)
  - Renal failure acute [Recovering/Resolving]
  - Dyspnoea [Recovered/Resolved]
  - Renal failure [Not Recovered/Not Resolved]
